FAERS Safety Report 21834807 (Version 1)
Quarter: 2023Q1

REPORT INFORMATION
  Report Type: Report from Study
  Country: PH (occurrence: PH)
  Receive Date: 20230108
  Receipt Date: 20230108
  Transmission Date: 20230417
  Serious: Yes (Death)
  Sender: FDA-Public Use
  Company Number: PH-002147023-NVSC2023PH003397

PATIENT
  Sex: Female

DRUGS (5)
  1. ENTRESTO [Suspect]
     Active Substance: SACUBITRIL\VALSARTAN
     Indication: Product used for unknown indication
     Dosage: UNK
     Route: 065
  2. INSPRA [Concomitant]
     Active Substance: EPLERENONE
     Indication: Product used for unknown indication
     Dosage: UNK (STRENGTH 25 (UNSPECIFIED UNITS))
     Route: 065
  3. DUOBLOC [Concomitant]
     Indication: Product used for unknown indication
     Dosage: UNK (STRENGTH 25 (UNSPECIFIED UNITS))
     Route: 065
  4. FUROSEMIDE [Concomitant]
     Active Substance: FUROSEMIDE
     Indication: Product used for unknown indication
     Dosage: UNK
     Route: 065
  5. THYROID [Concomitant]
     Active Substance: LEVOTHYROXINE\LIOTHYRONINE
     Indication: Product used for unknown indication
     Dosage: UNK (THYROID MAINTENANCE ALONG WITH ENTRESTO)
     Route: 065

REACTIONS (2)
  - Renal disorder [Fatal]
  - Cardiac disorder [Fatal]
